FAERS Safety Report 8379363-0 (Version None)
Quarter: 2012Q2

REPORT INFORMATION
  Report Type: 
  Country: None (occurrence: None)
  Receive Date: 20120523
  Receipt Date: 20120522
  Transmission Date: 20120825
  Serious: Yes (Death, Hospitalization)
  Sender: FDA-Public Use
  Company Number: PHFR2012GB003037

PATIENT
  Sex: Male

DRUGS (1)
  1. CLOZARIL [Suspect]
     Indication: SCHIZOPHRENIA
     Route: 048
     Dates: start: 20010228

REACTIONS (6)
  - MALAISE [None]
  - LUNG CANCER METASTATIC [None]
  - HEPATIC CANCER METASTATIC [None]
  - SPINAL CORD NEOPLASM [None]
  - PLATELET COUNT DECREASED [None]
  - INFLUENZA [None]
